FAERS Safety Report 6542420-5 (Version None)
Quarter: 2010Q1

REPORT INFORMATION
  Report Type: 
  Country: None (occurrence: None)
  Receive Date: 20100119
  Receipt Date: 20100112
  Transmission Date: 20100710
  Serious: Yes (Hospitalization)
  Sender: FDA-Public Use
  Company Number: KR-GILEAD-E2B_00000553

PATIENT
  Sex: Male
  Weight: 63 kg

DRUGS (4)
  1. HEPSERA [Suspect]
     Indication: HEPATITIS B
     Dosage: 10MG PER DAY
     Route: 048
     Dates: start: 20060706
  2. LAMIVUDINE [Concomitant]
     Indication: ANTIVIRAL TREATMENT
     Dates: start: 20060706, end: 20060805
  3. METOCLOPRAMIDE [Concomitant]
     Dates: start: 20060709, end: 20060714
  4. GRANISETRON [Concomitant]
     Dates: start: 20060709, end: 20060713

REACTIONS (1)
  - JAUNDICE [None]
